FAERS Safety Report 23406667 (Version 1)
Quarter: 2024Q1

REPORT INFORMATION
  Report Type: Spontaneous
  Country: US (occurrence: US)
  Receive Date: 20240116
  Receipt Date: 20240116
  Transmission Date: 20240410
  Serious: Yes (Life-Threatening, Hospitalization, Other)
  Sender: FDA-Public Use
  Company Number: US-PFIZER INC-202400005738

PATIENT
  Age: 16 Day
  Sex: Male

DRUGS (8)
  1. MIDAZOLAM [Suspect]
     Active Substance: MIDAZOLAM
     Indication: Seizure
     Dosage: UNK
  2. LEVETIRACETAM [Suspect]
     Active Substance: LEVETIRACETAM
     Indication: Seizure
     Dosage: UNK
  3. PHENOBARBITAL [Suspect]
     Active Substance: PHENOBARBITAL
     Indication: Seizure
     Dosage: UNK
  4. AMPICILLIN [Concomitant]
     Active Substance: AMPICILLIN
     Indication: Bacterial infection
     Dosage: 75 MG/KG, 4X/DAY (EVERY 6 HOURS)
     Route: 042
  5. AMPICILLIN [Concomitant]
     Active Substance: AMPICILLIN
     Dosage: 75 MG/KG, 4X/DAY (EVERY 6 HOURS)
     Route: 042
  6. GENTAMICIN [Concomitant]
     Active Substance: GENTAMICIN
     Indication: Bacterial infection
     Dosage: 2 MG/KG, 3X/DAY (EVERY 8 HOURS)
     Route: 042
  7. CEFTAZIDIME [Concomitant]
     Active Substance: CEFTAZIDIME
     Indication: Bacterial infection
     Dosage: 50 MG/KG, 3X/DAY (EVERY 8 HOURS)
     Route: 042
  8. ACYCLOVIR [Concomitant]
     Active Substance: ACYCLOVIR
     Indication: Bacterial infection
     Dosage: 20 MG/KG, 3X/DAY (EVERY 8 HOURS)
     Route: 042

REACTIONS (1)
  - Neonatal respiratory distress [Unknown]
